FAERS Safety Report 6913856-5 (Version None)
Quarter: 2010Q3

REPORT INFORMATION
  Report Type: 
  Country: None (occurrence: None)
  Receive Date: 20100809
  Receipt Date: 20100730
  Transmission Date: 20110219
  Serious: Yes (Hospitalization)
  Sender: FDA-Public Use
  Company Number: DE-ROCHE-713538

PATIENT
  Sex: Female

DRUGS (5)
  1. TRASTUZUMAB [Suspect]
     Dosage: FREQUENCY REPORTED AS CONTINUED FOR ALL THREE WEEKS
     Route: 042
  2. TRASTUZUMAB [Suspect]
     Route: 042
     Dates: start: 20100706
  3. ZOMETA [Concomitant]
     Dosage: FOR ALL FOUR WEEKS
     Dates: start: 20100706
  4. TRENANTONE [Concomitant]
     Route: 058
     Dates: start: 20090608
  5. FEMARA [Concomitant]
     Dates: start: 20090608

REACTIONS (1)
  - MALIGNANT NEOPLASM PROGRESSION [None]
